FAERS Safety Report 24296510 (Version 1)
Quarter: 2024Q3

REPORT INFORMATION
  Report Type: Spontaneous
  Country: US (occurrence: US)
  Receive Date: 20240909
  Receipt Date: 20240909
  Transmission Date: 20241017
  Serious: Yes (Hospitalization)
  Sender: ENDO
  Company Number: US-ENDO USA, INC.-2024-003342

PATIENT
  Age: 54 Year
  Sex: Male

DRUGS (1)
  1. HYDROXYUREA [Suspect]
     Active Substance: HYDROXYUREA
     Indication: Myelofibrosis
     Dosage: UNK UNKNOWN, UNKNOWN
     Route: 065

REACTIONS (4)
  - Hypersensitivity vasculitis [Recovered/Resolved]
  - Jejunal ulcer [Recovered/Resolved]
  - Ulcer haemorrhage [Recovered/Resolved]
  - Off label use [Recovered/Resolved]
